FAERS Safety Report 10203117 (Version 1)
Quarter: 2014Q2

REPORT INFORMATION
  Report Type: Spontaneous
  Country: FR (occurrence: FR)
  Receive Date: 20140529
  Receipt Date: 20140529
  Transmission Date: 20141212
  Serious: Yes (Other)
  Sender: FDA-Public Use
  Company Number: FR-ROCHE-1405419

PATIENT
  Age: 36 Year
  Sex: Female

DRUGS (4)
  1. RIVOTRIL [Suspect]
     Indication: PARAPLEGIA
     Dosage: 7 DROPS/DAY
     Route: 048
  2. LYRICA [Suspect]
     Indication: PARAPLEGIA
     Route: 048
     Dates: end: 20130907
  3. LIORESAL [Suspect]
     Indication: PARAPLEGIA
     Route: 048
  4. DITROPAN [Suspect]
     Indication: PARAPLEGIA
     Route: 048

REACTIONS (1)
  - Abortion induced [Unknown]
